FAERS Safety Report 8895293 (Version 1)
Quarter: 2012Q4

REPORT INFORMATION
  Report Type: 
  Country: US (occurrence: US)
  Receive Date: 20121107
  Receipt Date: 20121107
  Transmission Date: 20130627
  Serious: No
  Sender: FDA-Public Use
  Company Number: US-AMGEN-USASP2011056097

PATIENT
  Age: 38 Year
  Sex: Female

DRUGS (1)
  1. ENBREL [Suspect]
     Indication: PSORIATIC ARTHROPATHY
     Dosage: 50 mg, qwk

REACTIONS (5)
  - Influenza like illness [Unknown]
  - Chills [Unknown]
  - Pain [Unknown]
  - Pyrexia [Unknown]
  - Nasopharyngitis [Unknown]
